FAERS Safety Report 21954885 (Version 4)
Quarter: 2023Q4

REPORT INFORMATION
  Report Type: Report from Study
  Country: US (occurrence: US)
  Receive Date: 20230205
  Receipt Date: 20231012
  Transmission Date: 20240110
  Serious: No
  Sender: FDA-Public Use
  Company Number: US-BIOVITRUM-2023US01514

PATIENT
  Age: 74 Year
  Sex: Female

DRUGS (6)
  1. DOPTELET [Suspect]
     Active Substance: AVATROMBOPAG MALEATE
     Indication: Immune thrombocytopenia
     Dosage: 20 MG 2 TABLETS DAILY?40 MG/DAY
  2. DOPTELET [Suspect]
     Active Substance: AVATROMBOPAG MALEATE
     Dosage: 1 PILL PER DAY,?3TIMES IN A WEEK
     Route: 048
  3. PREDNISONE [Concomitant]
     Active Substance: PREDNISONE
  4. DEXAMETHASONE [Concomitant]
     Active Substance: DEXAMETHASONE
  5. RITUXAN [Concomitant]
     Active Substance: RITUXIMAB
  6. NPLATE [Concomitant]
     Active Substance: ROMIPLOSTIM

REACTIONS (1)
  - Platelet count increased [Recovered/Resolved]

NARRATIVE: CASE EVENT DATE: 20230124
